FAERS Safety Report 8858779 (Version 3)
Quarter: 2012Q4

REPORT INFORMATION
  Report Type: Report from Study
  Country: CA (occurrence: CA)
  Receive Date: 20121024
  Receipt Date: 20121123
  Transmission Date: 20130627
  Serious: Yes (Hospitalization)
  Sender: FDA-Public Use
  Company Number: CA-JNJFOC-20121002707

PATIENT
  Age: 19 Year
  Sex: Male
  Weight: 72 kg

DRUGS (7)
  1. REMICADE [Suspect]
     Indication: COLITIS ULCERATIVE
     Route: 042
     Dates: start: 20120824
  2. REMICADE [Suspect]
     Indication: COLITIS ULCERATIVE
     Route: 042
  3. REMICADE [Suspect]
     Indication: COLITIS ULCERATIVE
     Route: 042
     Dates: end: 20121001
  4. REMICADE [Suspect]
     Indication: COLITIS ULCERATIVE
     Route: 042
     Dates: start: 20120904
  5. AMOXICILLIN [Suspect]
     Indication: COUGH
     Route: 065
     Dates: start: 20120929, end: 20121001
  6. AMOXICILLIN [Suspect]
     Indication: NASOPHARYNGITIS
     Route: 065
     Dates: start: 20120929, end: 20121001
  7. PREDNISONE [Concomitant]
     Route: 065

REACTIONS (3)
  - Clostridium difficile infection [Unknown]
  - Haemorrhage [Recovering/Resolving]
  - Headache [Recovering/Resolving]
